FAERS Safety Report 8048690-9 (Version None)
Quarter: 2012Q1

REPORT INFORMATION
  Report Type: 
  Country: None (occurrence: None)
  Receive Date: 20120110
  Receipt Date: 20111227
  Transmission Date: 20120608
  Serious: Yes (Hospitalization, Other)
  Sender: FDA-Public Use
  Company Number: 2011MA016246

PATIENT
  Age: 26 Year
  Sex: Female

DRUGS (4)
  1. ISONIAZID [Suspect]
     Indication: TUBERCULOUS PLEURISY
     Dosage: 300 MG;UNK;UNK
  2. ETHAMBUTOL HCL [Suspect]
     Indication: TUBERCULOUS PLEURISY
     Dosage: 1200 MG;UNK;UNK
  3. RIFAMPIN [Suspect]
     Indication: TUBERCULOUS PLEURISY
     Dosage: 600 MG;UNK;UNK
  4. PYRAZINAMIDE [Suspect]
     Indication: TUBERCULOUS PLEURISY
     Dosage: 1500 MG;UNK;UNK

REACTIONS (4)
  - PARADOXICAL DRUG REACTION [None]
  - PLEURAL EFFUSION [None]
  - APPENDICITIS [None]
  - PERITONEAL TUBERCULOSIS [None]
